FAERS Safety Report 17520416 (Version 1)
Quarter: 2020Q1

REPORT INFORMATION
  Report Type: Report from Study
  Country: US (occurrence: US)
  Receive Date: 20200310
  Receipt Date: 20200310
  Transmission Date: 20200409
  Serious: Yes (Hospitalization)
  Sender: FDA-Public Use
  Company Number: US-EISAI MEDICAL RESEARCH-EC-2020-069391

PATIENT
  Sex: Female
  Weight: 67.5 kg

DRUGS (8)
  1. VITAMIN C [Concomitant]
     Active Substance: ASCORBIC ACID
  2. FISH OIL [Concomitant]
     Active Substance: FISH OIL
  3. MULTIVITAMINS [Concomitant]
     Active Substance: VITAMINS
  4. PROBIOTIC AND ACIDOPHILUS [Concomitant]
  5. LISINOPRIL. [Concomitant]
     Active Substance: LISINOPRIL
  6. VITAMIN D3 [Concomitant]
     Active Substance: CHOLECALCIFEROL
  7. LENVIMA [Suspect]
     Active Substance: LENVATINIB
     Indication: UTERINE CANCER
     Route: 048
     Dates: start: 20200129, end: 2020
  8. FIBER [Concomitant]
     Active Substance: PSYLLIUM HUSK

REACTIONS (7)
  - Abdominal pain [Recovered/Resolved]
  - Dysphonia [Unknown]
  - Blood urine present [Recovered/Resolved]
  - Nasal dryness [Unknown]
  - Hypertension [Unknown]
  - Haematochezia [Unknown]
  - Vaginal haemorrhage [Unknown]

NARRATIVE: CASE EVENT DATE: 2020
